FAERS Safety Report 19672549 (Version 4)
Quarter: 2023Q2

REPORT INFORMATION
  Report Type: Spontaneous
  Country: US (occurrence: US)
  Receive Date: 20210808
  Receipt Date: 20230505
  Transmission Date: 20230721
  Serious: Yes (Other)
  Sender: FDA-Public Use
  Company Number: US-ENDO PHARMACEUTICALS INC-2021-003498

PATIENT
  Age: 65 Year
  Sex: Male

DRUGS (6)
  1. RANITIDINE HYDROCHLORIDE [Suspect]
     Active Substance: RANITIDINE HYDROCHLORIDE
     Indication: Dyspepsia
     Dosage: 150 MG, DAILY
     Route: 065
     Dates: start: 200301, end: 201909
  2. RANITIDINE HYDROCHLORIDE [Suspect]
     Active Substance: RANITIDINE HYDROCHLORIDE
     Dosage: UNK UNKNOWN, UNKNOWN
     Route: 065
     Dates: end: 20190101
  3. RANITIDINE [Suspect]
     Active Substance: RANITIDINE
     Indication: Dyspepsia
     Dosage: 150 MG, DAILY
     Route: 065
     Dates: start: 200301, end: 201909
  4. RANITIDINE [Suspect]
     Active Substance: RANITIDINE
     Dosage: UNK UNKNOWN, UNKNOWN
     Route: 065
     Dates: start: 19980101, end: 20190101
  5. ZANTAC [Suspect]
     Active Substance: RANITIDINE HYDROCHLORIDE
     Indication: Product used for unknown indication
     Dosage: UNK UNKNOWN, UNKNOWN
     Route: 065
     Dates: start: 19980101, end: 20190101
  6. ZANTAC [Suspect]
     Active Substance: RANITIDINE HYDROCHLORIDE
     Indication: Product used for unknown indication
     Dosage: UNK UNKNOWN, UNKNOWN
     Route: 065
     Dates: start: 19980101, end: 20190101

REACTIONS (2)
  - Bladder cancer stage II [Not Recovered/Not Resolved]
  - Renal cancer stage II [Not Recovered/Not Resolved]

NARRATIVE: CASE EVENT DATE: 20190801
